FAERS Safety Report 5743538-7 (Version None)
Quarter: 2008Q2

REPORT INFORMATION
  Report Type: 
  Country: None (occurrence: None)
  Receive Date: 20080519
  Receipt Date: 20080519
  Transmission Date: 20081010
  Serious: Yes (Death, Life-Threatening, Hospitalization, Other)
  Sender: FDA-Public Use
  Company Number: None

PATIENT
  Age: 57 Year
  Sex: Male
  Weight: 49 kg

DRUGS (1)
  1. AVASTIN [Suspect]
     Indication: GLIOBLASTOMA MULTIFORME

REACTIONS (6)
  - BRONCHOPLEURAL FISTULA [None]
  - GASTROINTESTINAL HAEMORRHAGE [None]
  - HAEMOGLOBIN DECREASED [None]
  - PNEUMOTHORAX [None]
  - RESPIRATORY FAILURE [None]
  - SUBCUTANEOUS EMPHYSEMA [None]
